FAERS Safety Report 11742760 (Version 1)
Quarter: 2015Q4

REPORT INFORMATION
  Report Type: Spontaneous
  Country: US (occurrence: US)
  Receive Date: 20151116
  Receipt Date: 20151116
  Transmission Date: 20160304
  Serious: No
  Sender: FDA-Public Use
  Company Number: US-DRREDDYS-USA/USA/15/0045764

PATIENT
  Age: 13 Year
  Sex: Female
  Weight: 49.44 kg

DRUGS (2)
  1. PREDNISONE. [Suspect]
     Active Substance: PREDNISONE
     Indication: FOOD ALLERGY
     Route: 048
     Dates: start: 20150128, end: 20150129
  2. FAMOTIDINE 20 MG OTC [Suspect]
     Active Substance: FAMOTIDINE
     Indication: FOOD ALLERGY
     Route: 048
     Dates: start: 20150128, end: 20150129

REACTIONS (3)
  - Flushing [Recovered/Resolved]
  - Extra dose administered [Unknown]
  - Abdominal discomfort [Recovered/Resolved]

NARRATIVE: CASE EVENT DATE: 20150129
